FAERS Safety Report 24370296 (Version 1)
Quarter: 2024Q3

REPORT INFORMATION
  Report Type: Report from Study
  Country: US (occurrence: US)
  Receive Date: 20240927
  Receipt Date: 20240927
  Transmission Date: 20241017
  Serious: No
  Sender: ROCHE
  Company Number: US-ROCHE-3574907

PATIENT
  Age: 38 Year
  Sex: Male

DRUGS (3)
  1. LUCENTIS [Suspect]
     Active Substance: RANIBIZUMAB
     Indication: Diabetic retinopathy
     Dosage: QUANTITY: 30.3 MG
     Route: 050
     Dates: start: 20240524
  2. LUCENTIS [Suspect]
     Active Substance: RANIBIZUMAB
     Indication: Macular oedema
     Route: 050
  3. LUTEIN [Concomitant]
     Active Substance: LUTEIN

REACTIONS (1)
  - Vision blurred [Unknown]
